FAERS Safety Report 25080275 (Version 4)
Quarter: 2025Q2

REPORT INFORMATION
  Report Type: Spontaneous
  Country: JP (occurrence: JP)
  Receive Date: 20250314
  Receipt Date: 20250507
  Transmission Date: 20250717
  Serious: Yes (Hospitalization, Other)
  Sender: CSL BEHRING
  Company Number: JP-BEH-2025192205

PATIENT
  Age: 13 Year
  Sex: Female
  Weight: 23 kg

DRUGS (1)
  1. BERINERT [Suspect]
     Active Substance: HUMAN C1-ESTERASE INHIBITOR
     Indication: Product used for unknown indication
     Route: 065

REACTIONS (8)
  - Tracheal haemorrhage [Recovering/Resolving]
  - Physical deconditioning [Recovering/Resolving]
  - Hereditary angioedema [Recovering/Resolving]
  - Tracheal haemorrhage [Recovering/Resolving]
  - Physical deconditioning [Recovering/Resolving]
  - Hereditary angioedema [Recovering/Resolving]
  - Tracheal haemorrhage [Recovering/Resolving]
  - Tracheal haemorrhage [Recovering/Resolving]

NARRATIVE: CASE EVENT DATE: 20250101
